FAERS Safety Report 15709438 (Version 1)
Quarter: 2018Q4

REPORT INFORMATION
  Report Type: Spontaneous
  Country: FR (occurrence: FR)
  Receive Date: 20181211
  Receipt Date: 20181211
  Transmission Date: 20190205
  Serious: Yes (Hospitalization, Other)
  Sender: FDA-Public Use
  Company Number: FR-PFIZER INC-2018500870

PATIENT
  Age: 63 Year
  Sex: Female
  Weight: 54.5 kg

DRUGS (6)
  1. AVASTIN [Suspect]
     Active Substance: BEVACIZUMAB
     Indication: COLORECTAL ADENOCARCINOMA
     Dosage: 273 MG, CYCLIC
     Route: 041
     Dates: start: 20181030, end: 20181030
  2. FLUOROURACILE ACCORD [Suspect]
     Active Substance: FLUOROURACIL
     Indication: COLORECTAL ADENOCARCINOMA
     Dosage: 4508 MG, CYCLIC
     Route: 041
     Dates: start: 20181030, end: 20181101
  3. FOLINATE DE CALCIUM SANDOZ [Suspect]
     Active Substance: LEUCOVORIN CALCIUM
     Indication: COLORECTAL ADENOCARCINOMA
     Dosage: 644 MG, CYCLIC
     Route: 041
     Dates: start: 20181030, end: 20181030
  4. ONDANSETRON ACCORD [Suspect]
     Active Substance: ONDANSETRON
     Indication: PROPHYLAXIS OF NAUSEA AND VOMITING
     Dosage: 8 MG, CYCLIC
     Route: 041
     Dates: start: 20181030, end: 20181030
  5. OXALIPLATINE ACCORD [Suspect]
     Active Substance: OXALIPLATIN
     Indication: COLORECTAL ADENOCARCINOMA
     Dosage: 137 MG, CYCLIC
     Route: 041
     Dates: start: 20181030, end: 20181030
  6. SOLU-MEDROL [Suspect]
     Active Substance: METHYLPREDNISOLONE SODIUM SUCCINATE
     Indication: COLORECTAL ADENOCARCINOMA
     Dosage: 80 MG, CYCLIC
     Route: 041
     Dates: start: 20181030, end: 20181030

REACTIONS (1)
  - Pulmonary embolism [Recovering/Resolving]

NARRATIVE: CASE EVENT DATE: 20181104
